FAERS Safety Report 7309367-8 (Version None)
Quarter: 2011Q1

REPORT INFORMATION
  Report Type: 
  Country: None (occurrence: None)
  Receive Date: 20110223
  Receipt Date: 20110105
  Transmission Date: 20110831
  Serious: Yes (Other)
  Sender: FDA-Public Use
  Company Number: PHHY2011FR09158

PATIENT
  Age: 32 Year
  Sex: Male

DRUGS (5)
  1. CICLOSPORIN [Suspect]
     Indication: LUNG TRANSPLANT
  2. CORTICOSTEROID NOS [Suspect]
     Indication: IMMUNOSUPPRESSION
     Dosage: 1 MG/KG, UNK
     Route: 042
  3. INSULIN [Concomitant]
     Route: 042
  4. AZATHIOPRINE [Suspect]
     Indication: IMMUNOSUPPRESSION
     Dosage: 2 MG/KG
  5. CORTICOSTEROID NOS [Suspect]
     Dosage: 0.2 MG/KG, UNK

REACTIONS (4)
  - LUNG DISORDER [None]
  - LUNG TRANSPLANT REJECTION [None]
  - PROTEINURIA [None]
  - HYPOGLYCAEMIA [None]
